FAERS Safety Report 22171265 (Version 1)
Quarter: 2023Q2

REPORT INFORMATION
  Report Type: Spontaneous
  Country: US (occurrence: US)
  Receive Date: 20230404
  Receipt Date: 20230404
  Transmission Date: 20230721
  Serious: No
  Sender: FDA-Public Use
  Company Number: US-TAKEDA-2023TUS032785

PATIENT
  Age: 30 Year
  Sex: Female

DRUGS (1)
  1. ADDERALL XR [Suspect]
     Active Substance: AMPHETAMINE ASPARTATE\AMPHETAMINE SULFATE\DEXTROAMPHETAMINE SACCHARATE\DEXTROAMPHETAMINE SULFATE
     Indication: Attention deficit hyperactivity disorder
     Dosage: UNK
     Route: 065

REACTIONS (11)
  - Inability to afford medication [Unknown]
  - Insurance issue [Unknown]
  - Product availability issue [Unknown]
  - Withdrawal syndrome [Unknown]
  - Mental disorder [Unknown]
  - Panic disorder [Unknown]
  - Depressed mood [Unknown]
  - Confusional state [Unknown]
  - Depression [Unknown]
  - Anger [Unknown]
  - Anxiety [Unknown]
